FAERS Safety Report 7298831-6 (Version None)
Quarter: 2011Q1

REPORT INFORMATION
  Report Type: 
  Country: None (occurrence: None)
  Receive Date: 20110207
  Receipt Date: 20110120
  Transmission Date: 20110831
  Serious: Yes (Disabling, Other)
  Sender: FDA-Public Use
  Company Number: ACO_21577_2010

PATIENT
  Age: 70 Year
  Sex: Female
  Weight: 65.8 kg

DRUGS (2)
  1. AMPYRA [Suspect]
     Indication: MUSCULAR WEAKNESS
     Dosage: 10 MG, BID, ORAL
     Route: 048
     Dates: start: 20100731
  2. AMPYRA [Suspect]
     Indication: GAIT DISTURBANCE
     Dosage: 10 MG, BID, ORAL
     Route: 048
     Dates: start: 20100731

REACTIONS (12)
  - URINARY TRACT INFECTION [None]
  - DIARRHOEA [None]
  - APHASIA [None]
  - PARAESTHESIA [None]
  - INSOMNIA [None]
  - OFF LABEL USE [None]
  - MALAISE [None]
  - VOMITING [None]
  - MONOPLEGIA [None]
  - HOT FLUSH [None]
  - NAUSEA [None]
  - FATIGUE [None]
